FAERS Safety Report 14499078 (Version 1)
Quarter: 2018Q1

REPORT INFORMATION
  Report Type: Spontaneous
  Country: US (occurrence: US)
  Receive Date: 20180206
  Receipt Date: 20180206
  Transmission Date: 20180509
  Serious: No
  Sender: FDA-Public Use
  Company Number: None

PATIENT
  Age: 65 Year
  Sex: Male

DRUGS (1)
  1. HARVONI [Suspect]
     Active Substance: LEDIPASVIR\SOFOSBUVIR
     Dosage: 12/21/2017 STILL ON 2/6/2018
     Route: 048
     Dates: start: 20171221

REACTIONS (1)
  - Fatigue [None]

NARRATIVE: CASE EVENT DATE: 20180206
